FAERS Safety Report 13776043 (Version 1)
Quarter: 2017Q3

REPORT INFORMATION
  Report Type: Report from Study
  Country: BR (occurrence: BR)
  Receive Date: 20170720
  Receipt Date: 20170720
  Transmission Date: 20171127
  Serious: Yes (Other)
  Sender: FDA-Public Use
  Company Number: PHHY2017BR106670

PATIENT
  Sex: Female
  Weight: 80 kg

DRUGS (1)
  1. DIOVAN HCT [Suspect]
     Active Substance: HYDROCHLOROTHIAZIDE\VALSARTAN
     Indication: HYPERTENSION
     Dosage: 1 DF (HYDROCHLOROTHIAZIDE 12.5 MG/ VALSAATAN 160 MG), QD (IN THE MORNING FASTING)
     Route: 048

REACTIONS (3)
  - Glaucoma [Recovering/Resolving]
  - Cataract [Recovering/Resolving]
  - Memory impairment [Unknown]
